FAERS Safety Report 8199060-4 (Version None)
Quarter: 2012Q1

REPORT INFORMATION
  Report Type: 
  Country: None (occurrence: None)
  Receive Date: 20120309
  Receipt Date: 20120229
  Transmission Date: 20120608
  Serious: Yes (Death, Hospitalization)
  Sender: FDA-Public Use
  Company Number: FR-GLAXOSMITHKLINE-B0784833A

PATIENT
  Age: 74 Year
  Sex: Female

DRUGS (3)
  1. ARIXTRA [Suspect]
     Indication: DEEP VEIN THROMBOSIS
     Dosage: 7.5MG PER DAY
     Route: 058
     Dates: start: 20111208, end: 20111214
  2. AUGMENTIN '125' [Concomitant]
  3. PREVISCAN [Suspect]
     Indication: DEEP VEIN THROMBOSIS
     Dosage: .75UNIT PER DAY
     Route: 048
     Dates: start: 20111208, end: 20111214

REACTIONS (2)
  - SHOCK HAEMORRHAGIC [None]
  - INTRA-ABDOMINAL HAEMATOMA [None]
